FAERS Safety Report 19594829 (Version 1)
Quarter: 2021Q3

REPORT INFORMATION
  Report Type: Spontaneous
  Country: GB (occurrence: GB)
  Receive Date: 20210722
  Receipt Date: 20210722
  Transmission Date: 20211014
  Serious: Yes (Death, Other)
  Sender: FDA-Public Use
  Company Number: GB-PFIZER INC-2021583430

PATIENT
  Age: 46 Year
  Sex: Male

DRUGS (3)
  1. DIHYDROCODEINE [Suspect]
     Active Substance: DIHYDROCODEINE
     Dosage: UNK (INJECTING)
  2. METHADONE [Suspect]
     Active Substance: METHADONE HYDROCHLORIDE
     Dosage: UNK (INJECTING)
  3. MORPHINE SULFATE. [Suspect]
     Active Substance: MORPHINE SULFATE
     Dosage: UNK (INJECTING)

REACTIONS (3)
  - Clostridial infection [Fatal]
  - Intentional product misuse [Fatal]
  - Toxicity to various agents [Fatal]
